FAERS Safety Report 5789069-X (Version None)
Quarter: 2008Q2

REPORT INFORMATION
  Report Type: 
  Country: None (occurrence: None)
  Receive Date: 20080626
  Receipt Date: 20080620
  Transmission Date: 20081010
  Serious: Yes (Other)
  Sender: FDA-Public Use
  Company Number: B0526731A

PATIENT
  Sex: Female

DRUGS (1)
  1. NIQUITIN CQ CLEAR 21MG [Suspect]
     Route: 062

REACTIONS (6)
  - AGGRESSION [None]
  - CHEST PAIN [None]
  - FATIGUE [None]
  - HYPERTENSION [None]
  - NAUSEA [None]
  - VOMITING [None]
